FAERS Safety Report 5865056-8 (Version None)
Quarter: 2008Q3

REPORT INFORMATION
  Report Type: 
  Country: None (occurrence: None)
  Receive Date: 20080829
  Receipt Date: 20080822
  Transmission Date: 20090109
  Serious: Yes (Death)
  Sender: FDA-Public Use
  Company Number: A0730716A

PATIENT
  Age: 57 Year
  Sex: Male
  Weight: 118.2 kg

DRUGS (4)
  1. AVANDIA [Suspect]
     Indication: DRUG USE FOR UNKNOWN INDICATION
  2. AVANDAMET [Suspect]
     Dosage: 1000MG TWICE PER DAY
     Dates: start: 20061027, end: 20070526
  3. AMARYL [Concomitant]
     Dates: start: 20061101, end: 20070201
  4. DIABETA [Concomitant]
     Dates: start: 20040301, end: 20070526

REACTIONS (2)
  - CARDIAC FAILURE CONGESTIVE [None]
  - MYOCARDIAL INFARCTION [None]
